FAERS Safety Report 21297383 (Version 2)
Quarter: 2022Q4

REPORT INFORMATION
  Report Type: Other
  Country: US (occurrence: US)
  Receive Date: 20220906
  Receipt Date: 20221017
  Transmission Date: 20230112
  Serious: Yes (Hospitalization, Congenital Anomaly, Other)
  Sender: FDA-Public Use
  Company Number: US-Covis Pharma GmbH-2022COV02637

PATIENT
  Age: 0 Year
  Sex: Female
  Weight: 0.936 kg

DRUGS (2)
  1. MAKENA [Suspect]
     Active Substance: HYDROXYPROGESTERONE CAPROATE
     Indication: Foetal exposure during pregnancy
     Route: 064
     Dates: start: 20220506, end: 20220805
  2. MAKENA [Suspect]
     Active Substance: HYDROXYPROGESTERONE CAPROATE
     Indication: Premature delivery

REACTIONS (5)
  - Congenital aortic anomaly [Unknown]
  - Respiratory distress [Unknown]
  - Foetal growth restriction [Unknown]
  - Nonreassuring foetal heart rate pattern [Unknown]
  - Premature baby [Unknown]

NARRATIVE: CASE EVENT DATE: 20220812
